FAERS Safety Report 4461354-3 (Version None)
Quarter: 2004Q3

REPORT INFORMATION
  Report Type: 
  Country: None (occurrence: None)
  Receive Date: 20040928
  Receipt Date: 20040917
  Transmission Date: 20050211
  Serious: Yes (Other)
  Sender: FDA-Public Use
  Company Number: US-AMGEN-US091775

PATIENT
  Sex: Female

DRUGS (1)
  1. ETANERCEPT [Suspect]
     Indication: DRUG LEVEL
     Route: 058
     Dates: start: 20040803, end: 20040803

REACTIONS (3)
  - ABORTION SPONTANEOUS [None]
  - MATERNAL DRUGS AFFECTING FOETUS [None]
  - PREGNANCY [None]
